FAERS Safety Report 23274796 (Version 1)
Quarter: 2023Q4

REPORT INFORMATION
  Report Type: Spontaneous
  Country: DE (occurrence: DE)
  Receive Date: 20231208
  Receipt Date: 20231208
  Transmission Date: 20240110
  Serious: Yes (Hospitalization, Other)
  Sender: FDA-Public Use
  Company Number: DE-ABBVIE-5420382

PATIENT
  Age: 62 Year
  Sex: Male

DRUGS (6)
  1. CLOZAPINE [Suspect]
     Active Substance: CLOZAPINE
     Indication: Product used for unknown indication
     Dosage: UNK
     Route: 065
  2. QUETIAPINE [Suspect]
     Active Substance: QUETIAPINE
     Indication: Product used for unknown indication
     Dosage: UNK
     Route: 065
  3. CARBIDOPA\LEVODOPA [Suspect]
     Active Substance: CARBIDOPA\LEVODOPA
     Indication: Parkinson^s disease
     Dosage: MD: 7.9 ML; CRD: 3.0 ML/H; CRN: 2.0 ML/H, ED: 1.5 ML
     Route: 065
     Dates: start: 2023, end: 202309
  4. CARBIDOPA\LEVODOPA [Suspect]
     Active Substance: CARBIDOPA\LEVODOPA
     Dosage: MD: 7.9ML; CRD: 3.1ML/H; CRN: 3.1ML/H; ED: 1.5ML
     Route: 065
     Dates: start: 20220224, end: 2023
  5. CARBIDOPA\LEVODOPA [Suspect]
     Active Substance: CARBIDOPA\LEVODOPA
     Dosage: MD: 7.9 ML; CRD: 4.0 ML/H; CRN: 2.0 ML/H, ED: 1.5 ML
     Route: 065
     Dates: start: 202309
  6. AMISULID [Concomitant]
     Indication: Product used for unknown indication
     Dosage: UNK
     Route: 065

REACTIONS (37)
  - Psychotic disorder [Recovering/Resolving]
  - Hallucination [Unknown]
  - Dementia [Unknown]
  - Faecaloma [Unknown]
  - Unevaluable event [Unknown]
  - Discomfort [Unknown]
  - Gait disturbance [Unknown]
  - Freezing phenomenon [Unknown]
  - Depressed mood [Unknown]
  - Muscle rigidity [Unknown]
  - Delusion [Unknown]
  - Oedema peripheral [Unknown]
  - Anxiety [Unknown]
  - Apraxia [Unknown]
  - Balance disorder [Unknown]
  - Logorrhoea [Unknown]
  - Bradykinesia [Unknown]
  - Tremor [Unknown]
  - Fatigue [Unknown]
  - Sleep disorder [Unknown]
  - Reduced facial expression [Unknown]
  - Parkinsonian gait [Unknown]
  - Cognitive disorder [Unknown]
  - Impulse-control disorder [Unknown]
  - Autonomic nervous system imbalance [Unknown]
  - Posture abnormal [Unknown]
  - Kyphosis [Unknown]
  - Fine motor skill dysfunction [Unknown]
  - Hypokinetic dysarthria [Unknown]
  - Dyskinesia [Unknown]
  - Salivary hypersecretion [Unknown]
  - Parkinsonism [Unknown]
  - Illusion [Unknown]
  - Fear [Unknown]
  - Imperception [Unknown]
  - Mobility decreased [Not Recovered/Not Resolved]
  - Camptocormia [Unknown]

NARRATIVE: CASE EVENT DATE: 20230901
